FAERS Safety Report 20395594 (Version 1)
Quarter: 2022Q1

REPORT INFORMATION
  Report Type: Spontaneous
  Country: US (occurrence: US)
  Receive Date: 20220130
  Receipt Date: 20220130
  Transmission Date: 20220423
  Serious: Yes (Other)
  Sender: FDA-Public Use
  Company Number: US-NOVARTISPH-NVSC2022US019961

PATIENT
  Age: 62 Year
  Sex: Female

DRUGS (12)
  1. RANITIDINE [Suspect]
     Active Substance: RANITIDINE
     Dosage: 150 MG,300 MG,,,OTHER,AS NEEDED FOR PAIN AND EROSIVE ESOPHAGITIS
     Route: 048
     Dates: start: 199602, end: 202003
  2. RANITIDINE [Suspect]
     Active Substance: RANITIDINE
     Indication: Dyspepsia
  3. RANITIDINE [Suspect]
     Active Substance: RANITIDINE
     Indication: Erosive oesophagitis
  4. RANITIDINE [Suspect]
     Active Substance: RANITIDINE
     Indication: Neoplasm malignant
  5. RANITIDINE [Suspect]
     Active Substance: RANITIDINE
     Dosage: 150 MG,300 MG,,,OTHER,AS NEEDED FOR PAIN AND EROSIVE ESOPHAGITIS
     Route: 048
     Dates: start: 199602, end: 202003
  6. RANITIDINE [Suspect]
     Active Substance: RANITIDINE
     Indication: Dyspepsia
  7. RANITIDINE [Suspect]
     Active Substance: RANITIDINE
     Indication: Erosive oesophagitis
  8. RANITIDINE [Suspect]
     Active Substance: RANITIDINE
     Indication: Neoplasm malignant
  9. RANITIDINE [Suspect]
     Active Substance: RANITIDINE
     Dosage: ,OTHER,OTHER,AS NEEDED FOR PAIN AND EROSIVE ESOPHAGITIS
     Route: 048
     Dates: start: 199602, end: 202003
  10. RANITIDINE [Suspect]
     Active Substance: RANITIDINE
     Indication: Dyspepsia
  11. RANITIDINE [Suspect]
     Active Substance: RANITIDINE
     Indication: Erosive oesophagitis
  12. RANITIDINE [Suspect]
     Active Substance: RANITIDINE
     Indication: Neoplasm malignant

REACTIONS (5)
  - Breast cancer [Unknown]
  - Gallbladder cancer [Unknown]
  - Incorrect dose administered [Unknown]
  - Inappropriate schedule of product administration [Unknown]
  - Product use in unapproved indication [Unknown]

NARRATIVE: CASE EVENT DATE: 20100901
